FAERS Safety Report 24324524 (Version 1)
Quarter: 2024Q3

REPORT INFORMATION
  Report Type: Spontaneous
  Country: US (occurrence: None)
  Receive Date: 20240916
  Receipt Date: 20240916
  Transmission Date: 20241017
  Serious: Yes (unspecified)
  Sender: Public
  Company Number: None

PATIENT
  Age: 19 Month
  Sex: Female
  Weight: 9.07 kg

DRUGS (1)
  1. AMOXICILLIN [Suspect]
     Active Substance: AMOXICILLIN
     Indication: Otitis media
     Dates: start: 20240913, end: 20240913

REACTIONS (2)
  - Drug hypersensitivity [None]
  - Hand-foot-and-mouth disease [None]

NARRATIVE: CASE EVENT DATE: 20240913
